FAERS Safety Report 14506902 (Version 1)
Quarter: 2018Q1

REPORT INFORMATION
  Report Type: Spontaneous
  Country: US (occurrence: US)
  Receive Date: 20180208
  Receipt Date: 20180208
  Transmission Date: 20180509
  Serious: No
  Sender: FDA-Public Use
  Company Number: US-MYLANLABS-2018M1007400

PATIENT
  Sex: Female
  Weight: 109 kg

DRUGS (1)
  1. DICYCLOVERINE [Suspect]
     Active Substance: DICYCLOMINE HYDROCHLORIDE
     Indication: NAUSEA
     Dosage: 20 MG, UNK
     Route: 048

REACTIONS (1)
  - Retching [Unknown]
